FAERS Safety Report 15121927 (Version 1)
Quarter: 2018Q3

REPORT INFORMATION
  Report Type: Spontaneous
  Country: US (occurrence: US)
  Receive Date: 20180613
  Receipt Date: 20180613
  Transmission Date: 20181010
  Serious: No
  Sender: FDA-Public Use
  Company Number: None

PATIENT
  Age: 49 Year
  Sex: Female

DRUGS (1)
  1. ENBREL [Suspect]
     Active Substance: ETANERCEPT
     Dates: start: 20080601, end: 20170601

REACTIONS (2)
  - Rheumatoid arthritis [None]
  - Disease recurrence [None]

NARRATIVE: CASE EVENT DATE: 20180613
